FAERS Safety Report 5013604-2 (Version None)
Quarter: 2006Q2

REPORT INFORMATION
  Report Type: 
  Country: None (occurrence: None)
  Receive Date: 20060530
  Receipt Date: 20060519
  Transmission Date: 20061013
  Serious: Yes (Hospitalization)
  Sender: FDA-Public Use
  Company Number: CA-GLAXOSMITHKLINE-A0606830A

PATIENT
  Sex: Female

DRUGS (1)
  1. PAXIL [Suspect]
     Route: 048
     Dates: end: 20060401

REACTIONS (5)
  - DRUG WITHDRAWAL SYNDROME [None]
  - DRY MOUTH [None]
  - NAUSEA [None]
  - PHOTOPHOBIA [None]
  - VOMITING [None]
